FAERS Safety Report 11929670 (Version 1)
Quarter: 2016Q1

REPORT INFORMATION
  Report Type: Spontaneous
  Country: US (occurrence: None)
  Receive Date: 20160119
  Receipt Date: 20160119
  Transmission Date: 20160526
  Serious: No
  Sender: FDA-Public Use
  Company Number: None

PATIENT
  Age: 46 Year
  Sex: Female

DRUGS (2)
  1. LO LOESTRIN FE [Suspect]
     Active Substance: ETHINYL ESTRADIOL\NORETHINDRONE ACETATE
     Indication: MENOPAUSAL SYMPTOMS
     Dosage: 1/10MCG 1 PILL 1 DAILY BY MOUTH
     Route: 048
     Dates: start: 20151221, end: 20160104
  2. LO LOESTRIN FE [Suspect]
     Active Substance: ETHINYL ESTRADIOL\NORETHINDRONE ACETATE
     Indication: MENORRHAGIA
     Dosage: 1/10MCG 1 PILL 1 DAILY BY MOUTH
     Route: 048
     Dates: start: 20151221, end: 20160104

REACTIONS (3)
  - Uterine haemorrhage [None]
  - Muscle spasms [None]
  - Product blister packaging issue [None]

NARRATIVE: CASE EVENT DATE: 20160105
